FAERS Safety Report 6035392-3 (Version None)
Quarter: 2009Q1

REPORT INFORMATION
  Report Type: 
  Country: None (occurrence: None)
  Receive Date: 20090112
  Receipt Date: 20090112
  Transmission Date: 20090719
  Serious: Yes (Hospitalization)
  Sender: FDA-Public Use
  Company Number: None

PATIENT
  Sex: Female
  Weight: 61.1 kg

DRUGS (6)
  1. ATOVAQUONE [Suspect]
     Indication: ANTIFUNGAL PROPHYLAXIS
     Dosage: 750 MG/5 ML 1500 MG DAILY ORAL
     Route: 048
     Dates: start: 20081222, end: 20081229
  2. RALTEGRAVIR [Concomitant]
  3. TRUVADA [Concomitant]
  4. METOPROLOL TARTRATE [Concomitant]
  5. VALTREX [Concomitant]
  6. PROMETHAZINE [Concomitant]

REACTIONS (6)
  - ABDOMINAL PAIN [None]
  - CHEST PAIN [None]
  - LIP SWELLING [None]
  - NAUSEA [None]
  - SALIVARY HYPERSECRETION [None]
  - SYSTEMIC INFLAMMATORY RESPONSE SYNDROME [None]
